FAERS Safety Report 7549462-1 (Version None)
Quarter: 2011Q2

REPORT INFORMATION
  Report Type: 
  Country: None (occurrence: None)
  Receive Date: 20110615
  Receipt Date: 20041124
  Transmission Date: 20111010
  Serious: Yes (Hospitalization, Other)
  Sender: FDA-Public Use
  Company Number: PHFR2004GB03540

PATIENT
  Sex: Female

DRUGS (1)
  1. CLOZAPINE [Suspect]
     Indication: SCHIZOPHRENIA
     Dosage: 200 MG, QD
     Route: 048
     Dates: start: 19960903

REACTIONS (14)
  - HYPOTENSION [None]
  - OEDEMA [None]
  - PLATELET COUNT INCREASED [None]
  - HYPEROSMOLAR STATE [None]
  - DECREASED APPETITE [None]
  - MALAISE [None]
  - CARDIAC FAILURE [None]
  - PLEURAL EFFUSION [None]
  - LETHARGY [None]
  - CHRONIC OBSTRUCTIVE PULMONARY DISEASE [None]
  - BODY TEMPERATURE INCREASED [None]
  - HAEMOGLOBIN DECREASED [None]
  - PNEUMONIA [None]
  - DEHYDRATION [None]
